FAERS Safety Report 9392715 (Version 1)
Quarter: 2013Q3

REPORT INFORMATION
  Report Type: Spontaneous
  Country: US (occurrence: None)
  Receive Date: 20130708
  Receipt Date: 20130708
  Transmission Date: 20140515
  Serious: Yes (Other)
  Sender: FDA-Public Use
  Company Number: None

PATIENT
  Age: 67 Year
  Sex: Female

DRUGS (1)
  1. PEGASYS [Suspect]
     Indication: COMA HEPATIC
     Dosage: 0.5 ML ( 180 MCG) ONCE WEEKLY SUBCUTANEOUSLY
     Route: 058
     Dates: start: 20130813, end: 20130813

REACTIONS (1)
  - Syncope [None]
